FAERS Safety Report 7154080-3 (Version None)
Quarter: 2010Q4

REPORT INFORMATION
  Report Type: 
  Country: None (occurrence: None)
  Receive Date: 20101213
  Receipt Date: 20101202
  Transmission Date: 20110411
  Serious: Yes (Hospitalization)
  Sender: FDA-Public Use
  Company Number: AU-SANOFI-AVENTIS-2010SA072854

PATIENT
  Age: 70 Year
  Sex: Female

DRUGS (1)
  1. NATRILIX - SLOW RELEASE [Suspect]
     Route: 048

REACTIONS (2)
  - HEADACHE [None]
  - SYNCOPE [None]
